FAERS Safety Report 4510184-2 (Version None)
Quarter: 2004Q4

REPORT INFORMATION
  Report Type: 
  Country: None (occurrence: None)
  Receive Date: 20041124
  Receipt Date: 20041116
  Transmission Date: 20050328
  Serious: Yes (Hospitalization)
  Sender: FDA-Public Use
  Company Number: FR-MERCK-0411FRA00055

PATIENT
  Age: 38 Year
  Sex: Female

DRUGS (4)
  1. ALDOMET [Suspect]
     Indication: HYPERTENSION
     Route: 048
     Dates: start: 20040910, end: 20040925
  2. OFLOXACIN [Suspect]
     Indication: URINARY TRACT INFECTION
     Route: 048
     Dates: start: 20040918, end: 20040922
  3. LABETALOL HYDROCHLORIDE [Suspect]
     Indication: HYPERTENSION
     Route: 042
     Dates: start: 20040909, end: 20040910
  4. LABETALOL HYDROCHLORIDE [Suspect]
     Route: 048
     Dates: start: 20040910, end: 20040924

REACTIONS (1)
  - AGRANULOCYTOSIS [None]
